FAERS Safety Report 17436918 (Version 5)
Quarter: 2020Q3

REPORT INFORMATION
  Report Type: Spontaneous
  Country: US (occurrence: US)
  Receive Date: 20200219
  Receipt Date: 20200701
  Transmission Date: 20201102
  Serious: No
  Sender: FDA-Public Use
  Company Number: US-PFIZER INC-2020072188

PATIENT
  Age: 69 Year
  Sex: Female
  Weight: 72.57 kg

DRUGS (6)
  1. VFEND [Suspect]
     Active Substance: VORICONAZOLE
     Indication: PRODUCTIVE COUGH
     Dosage: 300 MG, 2X/DAY
  2. VFEND [Suspect]
     Active Substance: VORICONAZOLE
     Indication: PENICILLIUM INFECTION
     Dosage: 200 MG, 2X/DAY
     Dates: start: 201812
  3. VFEND [Suspect]
     Active Substance: VORICONAZOLE
     Indication: ASPERGILLUS INFECTION
     Dosage: 200 MG, 2X/DAY
     Dates: start: 202003
  4. VFEND [Suspect]
     Active Substance: VORICONAZOLE
     Dosage: 200 MG, 2X/DAY
     Route: 048
     Dates: start: 20200407, end: 20200608
  5. VFEND [Suspect]
     Active Substance: VORICONAZOLE
     Dosage: 400 MG, 2X/DAY
  6. VFEND [Suspect]
     Active Substance: VORICONAZOLE
     Indication: PULMONARY MYCOSIS
     Dosage: 400 MG, UNK (INCREASED HER DOSE UP TO 400MG)

REACTIONS (9)
  - Sensitive skin [Recovered/Resolved]
  - Cough [Not Recovered/Not Resolved]
  - Drug level below therapeutic [Recovered/Resolved]
  - Senile pruritus [Recovering/Resolving]
  - Lung disorder [Not Recovered/Not Resolved]
  - Erythema [Recovered/Resolved]
  - Paraesthesia [Recovered/Resolved]
  - Rash papular [Recovering/Resolving]
  - Sunburn [Recovering/Resolving]

NARRATIVE: CASE EVENT DATE: 201812
